FAERS Safety Report 9640008 (Version 1)
Quarter: 2013Q4

REPORT INFORMATION
  Report Type: Spontaneous
  Country: US (occurrence: US)
  Receive Date: 20131023
  Receipt Date: 20131023
  Transmission Date: 20140711
  Serious: Yes (Hospitalization)
  Sender: FDA-Public Use
  Company Number: PHEH2013US021905

PATIENT
  Age: 15 Year
  Sex: Male

DRUGS (2)
  1. TOBI PODHALER [Suspect]
     Dosage: UNK UKN, UNK
  2. PULMOZYME [Concomitant]
     Dosage: UNK UKN, UNK

REACTIONS (2)
  - Condition aggravated [Unknown]
  - Haemoptysis [Unknown]
